FAERS Safety Report 5663865-1 (Version None)
Quarter: 2008Q1

REPORT INFORMATION
  Report Type: 
  Country: None (occurrence: None)
  Receive Date: 20080311
  Receipt Date: 20080220
  Transmission Date: 20080703
  Serious: Yes (Hospitalization)
  Sender: FDA-Public Use
  Company Number: 2008EU000354

PATIENT
  Age: 31 Year
  Sex: Male

DRUGS (3)
  1. PROGRAF [Suspect]
     Indication: LUNG TRANSPLANT
     Dosage: /D,  ORAL
     Route: 048
  2. CELLCEPT [Suspect]
     Indication: LIVER TRANSPLANT
     Dosage: 4 DF, UID/QD, ORAL; 1 DF, TID, ORAL
     Route: 048
  3. CERTICAN [Suspect]
     Indication: LUNG TRANSPLANT
     Dosage: 25 MG, BID, ORAL
     Route: 048

REACTIONS (4)
  - HYPERTHERMIA [None]
  - LUNG DISORDER [None]
  - NEUTROPENIA [None]
  - RESPIRATORY SYNCYTIAL VIRUS INFECTION [None]
